FAERS Safety Report 8400048-6 (Version None)
Quarter: 2012Q2

REPORT INFORMATION
  Report Type: 
  Country: None (occurrence: None)
  Receive Date: 20120531
  Receipt Date: 20120514
  Transmission Date: 20120825
  Serious: Yes (Hospitalization, Other)
  Sender: FDA-Public Use
  Company Number: JP-ROCHE-789462

PATIENT
  Age: 55 Year

DRUGS (18)
  1. NEORAL [Suspect]
     Indication: PROPHYLAXIS AGAINST TRANSPLANT REJECTION
     Dosage: 75-175 MG
     Route: 048
     Dates: start: 20010122, end: 20010305
  2. AKINETON [Concomitant]
     Route: 042
     Dates: start: 20010122, end: 20010126
  3. ALLOPURINOL [Suspect]
     Indication: PROPHYLAXIS AGAINST TRANSPLANT REJECTION
     Route: 048
     Dates: start: 20010214, end: 20010221
  4. CELLCEPT [Suspect]
     Dosage: DOSAGE IS UNCERTAIN.
     Route: 048
     Dates: start: 20010123, end: 20010126
  5. PROGRAF [Suspect]
     Indication: PROPHYLAXIS AGAINST TRANSPLANT REJECTION
     Dates: start: 20010305
  6. COTRIM [Suspect]
     Indication: PROPHYLAXIS AGAINST TRANSPLANT REJECTION
     Route: 048
     Dates: start: 20010201, end: 20010221
  7. LASIX [Concomitant]
     Route: 048
  8. ALDACTONE [Concomitant]
     Route: 048
     Dates: start: 20010123
  9. HALOPERIDOL [Concomitant]
     Route: 048
     Dates: start: 20010127
  10. CELLCEPT [Suspect]
     Indication: PROPHYLAXIS AGAINST TRANSPLANT REJECTION
     Dosage: DOSAGE IS UNCERTAIN.
     Route: 048
     Dates: start: 20010123, end: 20010123
  11. OMEPRAZOLE [Suspect]
     Indication: PROPHYLAXIS AGAINST TRANSPLANT REJECTION
     Route: 048
     Dates: start: 20010208, end: 20010227
  12. ENALAPRIL MALEATE [Suspect]
     Indication: PROPHYLAXIS AGAINST TRANSPLANT REJECTION
     Route: 048
     Dates: start: 20010215, end: 20010228
  13. CELLCEPT [Suspect]
     Dosage: DOSAGE IS UNCERTAIN.
     Route: 048
     Dates: start: 20010127, end: 20010127
  14. ZOVIRAX [Suspect]
     Indication: PROPHYLAXIS AGAINST TRANSPLANT REJECTION
     Route: 048
     Dates: start: 20010122, end: 20010221
  15. CELLCEPT [Suspect]
     Dosage: DOSAGE IS UNCERTAIN.
     Route: 048
     Dates: start: 20010131, end: 20010131
  16. CELLCEPT [Suspect]
     Dosage: DOSAGE IS UNCERTAIN.
     Route: 048
     Dates: start: 20010201, end: 20010218
  17. DIFLUCAN [Suspect]
     Indication: PROPHYLAXIS AGAINST TRANSPLANT REJECTION
     Route: 048
     Dates: start: 20010122, end: 20010221
  18. HALOPERIDOL [Concomitant]
     Route: 042
     Dates: start: 20010122, end: 20010126

REACTIONS (3)
  - PNEUMONIA [None]
  - PANCYTOPENIA [None]
  - GASTRIC ULCER HAEMORRHAGE [None]
